FAERS Safety Report 6555877-0 (Version None)
Quarter: 2010Q1

REPORT INFORMATION
  Report Type: 
  Country: None (occurrence: None)
  Receive Date: 20100128
  Receipt Date: 20100119
  Transmission Date: 20100710
  Serious: Yes (Life-Threatening, Hospitalization, Disabling)
  Sender: FDA-Public Use
  Company Number: US-JNJFOC-20091102657

PATIENT
  Sex: Female
  Weight: 55.34 kg

DRUGS (4)
  1. REMICADE [Suspect]
     Indication: PSORIATIC ARTHROPATHY
     Route: 042
     Dates: start: 20090623, end: 20090801
  2. REMICADE [Suspect]
     Route: 042
     Dates: start: 20090623, end: 20090801
  3. ORAL CONTRACEPTIVE  NOS [Concomitant]
     Indication: CONTRACEPTION
     Route: 048
  4. DICLOFENAC SODIUM [Concomitant]

REACTIONS (3)
  - ACUTE HEPATIC FAILURE [None]
  - AUTOIMMUNE HEPATITIS [None]
  - HERPES SIMPLEX [None]
